FAERS Safety Report 11170927 (Version 2)
Quarter: 2015Q3

REPORT INFORMATION
  Report Type: Spontaneous
  Country: IT (occurrence: IT)
  Receive Date: 20150608
  Receipt Date: 20150903
  Transmission Date: 20151125
  Serious: Yes (Hospitalization)
  Sender: FDA-Public Use
  Company Number: IT-BIOGENIDEC-2015BI074804

PATIENT
  Age: 33 Year
  Sex: Female

DRUGS (6)
  1. HUMALOG [Concomitant]
     Active Substance: INSULIN LISPRO
     Route: 058
     Dates: start: 199306
  2. HUMALOG [Concomitant]
     Active Substance: INSULIN LISPRO
     Route: 058
     Dates: start: 199306
  3. LANTUS [Concomitant]
     Active Substance: INSULIN GLARGINE
     Route: 058
     Dates: start: 199306
  4. CARDIASPIRIN [Concomitant]
     Active Substance: ASPIRIN
     Route: 048
     Dates: start: 2012
  5. AVONEX [Suspect]
     Active Substance: INTERFERON BETA-1A
     Indication: RELAPSING-REMITTING MULTIPLE SCLEROSIS
     Route: 030
     Dates: start: 20140224, end: 20150112
  6. HUMALOG [Concomitant]
     Active Substance: INSULIN LISPRO
     Route: 058
     Dates: start: 199306

REACTIONS (1)
  - Thyroiditis subacute [Recovered/Resolved with Sequelae]

NARRATIVE: CASE EVENT DATE: 20150112
